FAERS Safety Report 26215644 (Version 1)
Quarter: 2025Q4

REPORT INFORMATION
  Report Type: Spontaneous
  Country: US (occurrence: US)
  Receive Date: 20251231
  Receipt Date: 20251231
  Transmission Date: 20260118
  Serious: No
  Sender: TOLMAR
  Company Number: US-Tolmar-TLM-2025-08732

PATIENT

DRUGS (2)
  1. FENSOLVI [Suspect]
     Active Substance: LEUPROLIDE ACETATE
     Indication: Precocious puberty
     Dosage: DOSE NOT ADMINISTERED?BOX LOT: 15371CUF EXP: 12-2026?SN#: 9352602831729?GTIN: 00362935163602?SYRINGE
  2. DEVICE [Suspect]
     Active Substance: DEVICE
     Indication: Precocious puberty
     Dosage: DOSE NOT ADMINISTERED?BOX LOT: 15371CUF EXP: 12-2026?SN#: 9352602831729?GTIN: 00362935163602??SYRING

REACTIONS (3)
  - Wrong technique in product usage process [Unknown]
  - Device defective [Unknown]
  - Product quality issue [Unknown]
